FAERS Safety Report 7772858-X (Version None)
Quarter: 2011Q3

REPORT INFORMATION
  Report Type: 
  Country: None (occurrence: None)
  Receive Date: 20110922
  Receipt Date: 20110421
  Transmission Date: 20111222
  Serious: No
  Sender: FDA-Public Use
  Company Number: US-ASTRAZENECA-2011SE23393

PATIENT
  Age: 55 Year
  Sex: Female

DRUGS (3)
  1. SEROQUEL [Suspect]
     Indication: BIPOLAR DISORDER
     Route: 048
  2. LITHIUM [Concomitant]
  3. EFFEXOR [Concomitant]

REACTIONS (3)
  - MALAISE [None]
  - DRUG DOSE OMISSION [None]
  - HALLUCINATION, AUDITORY [None]
